FAERS Safety Report 13723450 (Version 1)
Quarter: 2017Q3

REPORT INFORMATION
  Report Type: Spontaneous
  Country: US (occurrence: US)
  Receive Date: 20170706
  Receipt Date: 20170706
  Transmission Date: 20171127
  Serious: No
  Sender: FDA-Public Use
  Company Number: US-JNJFOC-20170318280

PATIENT
  Age: 71 Year
  Sex: Male

DRUGS (9)
  1. SOLU-MEDROL [Concomitant]
     Active Substance: METHYLPREDNISOLONE SODIUM SUCCINATE
     Route: 065
  2. IMODIUM [Suspect]
     Active Substance: LOPERAMIDE HYDROCHLORIDE
     Indication: DIARRHOEA
     Route: 065
  3. ABIRATERONE ACETATE [Concomitant]
     Active Substance: ABIRATERONE ACETATE
     Route: 065
  4. PREDNISONE. [Concomitant]
     Active Substance: PREDNISONE
     Route: 065
  5. CABAZITAXEL [Concomitant]
     Active Substance: CABAZITAXEL
     Route: 065
  6. LOMOTIL [Concomitant]
     Active Substance: ATROPINE SULFATE\DIPHENOXYLATE HYDROCHLORIDE
     Route: 065
  7. CARBOPLATIN. [Concomitant]
     Active Substance: CARBOPLATIN
     Route: 065
  8. IPILIMUMAB [Concomitant]
     Active Substance: IPILIMUMAB
     Route: 065
  9. ARN 509 [Concomitant]
     Route: 065

REACTIONS (1)
  - Drug ineffective [Unknown]
